FAERS Safety Report 4311488-9 (Version None)
Quarter: 2004Q1

REPORT INFORMATION
  Report Type: 
  Country: None (occurrence: None)
  Receive Date: 20040303
  Receipt Date: 20040303
  Transmission Date: 20041129
  Serious: Yes (Other)
  Sender: FDA-Public Use
  Company Number: None

PATIENT
  Age: 62 Year
  Sex: Male
  Weight: 56 kg

DRUGS (9)
  1. ITRACONAZOLE [Suspect]
     Indication: BLASTOMYCOSIS
     Dosage: 200 MG BID ORAL
     Route: 048
     Dates: start: 20040204, end: 20040213
  2. PROTONIX [Concomitant]
  3. ASPIRIN [Concomitant]
  4. PLAVIX [Concomitant]
  5. ATENOLOL [Concomitant]
  6. FUROSEMIDE [Concomitant]
  7. GLIPIZIDE [Concomitant]
  8. AVANDIA [Concomitant]
  9. CELEBREX [Concomitant]

REACTIONS (1)
  - CHOLESTASIS [None]
